FAERS Safety Report 8221347-7 (Version None)
Quarter: 2012Q1

REPORT INFORMATION
  Report Type: 
  Country: None (occurrence: None)
  Receive Date: 20120320
  Receipt Date: 20120315
  Transmission Date: 20120608
  Serious: Yes (Other)
  Sender: FDA-Public Use
  Company Number: PHHY2012DE022048

PATIENT
  Sex: Female

DRUGS (12)
  1. VENLAFAXINE HYDROCHLORIDE [Suspect]
     Dosage: 75-300MG AM
     Route: 048
     Dates: start: 20100701, end: 20110710
  2. SEROQUEL [Suspect]
     Dosage: 350 MG, DAILY
     Route: 048
     Dates: start: 20100501, end: 20110629
  3. AMITRIPTYLINE HCL [Suspect]
     Dosage: 300 MG, DAILY
     Route: 048
     Dates: start: 20110815
  4. AMITRIPTYLINE HCL [Suspect]
     Dosage: 50-225 MG AM
     Route: 048
     Dates: start: 20110720, end: 20110814
  5. DIOVAN [Concomitant]
     Indication: HYPERTENSION
     Dosage: 80 MG, DAILY
     Dates: start: 20100501
  6. AMITRIPTYLINE HCL [Suspect]
     Dosage: 25 MG, DAILY
     Route: 048
     Dates: start: 20100501, end: 20110719
  7. SEROQUEL [Suspect]
     Dosage: 100 - 300MG AM
     Route: 048
     Dates: start: 20110630, end: 20110715
  8. CARBAMAZEPINE [Suspect]
     Dosage: 400 MG, DAILY
     Route: 048
     Dates: start: 20110726
  9. VENLAFAXINE HYDROCHLORIDE [Suspect]
     Dosage: 375 MG,DAILY
     Route: 048
     Dates: start: 20100501, end: 20110630
  10. VERA [Concomitant]
     Dosage: 240 MG, DAILY
     Route: 048
  11. TILIDINE [Suspect]
     Dosage: 150/12 MG
     Route: 048
  12. CARBAMAZEPINE [Suspect]
     Dosage: 300 MG, DAILY
     Route: 048
     Dates: end: 20110725

REACTIONS (2)
  - BLOOD CHOLESTEROL INCREASED [None]
  - WEIGHT INCREASED [None]
